FAERS Safety Report 9113323 (Version 2)
Quarter: 2013Q2

REPORT INFORMATION
  Report Type: Spontaneous
  Country: JP (occurrence: JP)
  Receive Date: 20130211
  Receipt Date: 20130424
  Transmission Date: 20140414
  Serious: Yes (Other)
  Sender: FDA-Public Use
  Company Number: JP-SANOFI-AVENTIS-2013SA010136

PATIENT
  Age: 39 Year
  Sex: Female

DRUGS (3)
  1. TAXOTERE [Suspect]
     Indication: BREAST CANCER
     Dosage: 110 MG/BODY
     Route: 042
     Dates: start: 20121011, end: 20121213
  2. ENDOXAN [Concomitant]
     Dates: start: 20121011, end: 20121213
  3. DECADRON [Concomitant]
     Dosage: 16 DOSES
     Dates: start: 20121010, end: 20121014

REACTIONS (2)
  - Pulmonary hypertension [Recovering/Resolving]
  - Oedema peripheral [Recovering/Resolving]
